FAERS Safety Report 9326280 (Version 2)
Quarter: 2013Q3

REPORT INFORMATION
  Report Type: Report from Study
  Country: BR (occurrence: BR)
  Receive Date: 20130604
  Receipt Date: 20130808
  Transmission Date: 20140515
  Serious: Yes (Life-Threatening, Other)
  Sender: FDA-Public Use
  Company Number: PHHY2013BR056254

PATIENT
  Age: 67 Year
  Sex: Female

DRUGS (7)
  1. ACLASTA [Suspect]
     Indication: OSTEOPOROSIS
     Dosage: 5 MG, 1 APPLICATION A YEAR
     Route: 042
     Dates: start: 2011
  2. ACLASTA [Suspect]
     Dosage: 5 MG, 1 APPLICATION A YEAR
     Route: 042
     Dates: start: 2013
  3. CALCIUM D3                         /00944201/ [Concomitant]
     Indication: OSTEOPOROSIS
     Dosage: 2 DF, DAILY
     Route: 048
     Dates: start: 201301
  4. EUTHYROX [Concomitant]
     Indication: THYROID DISORDER
     Dosage: 1 DF, DAILY (CONCENTRATION OF 50)
     Route: 048
  5. FISH OIL [Concomitant]
     Indication: BLOOD CHOLESTEROL INCREASED
     Dosage: UNK UKN, UNK
     Route: 048
  6. VITAMIN D3 [Concomitant]
     Indication: VITAMIN D DECREASED
     Dosage: UNK 10 DROPS A DAY)
  7. VITAMIN D3 [Concomitant]
     Dosage: UNK 10 DROPS A DAY)

REACTIONS (14)
  - Dengue fever [Recovered/Resolved]
  - Chills [Recovered/Resolved]
  - Pyrexia [Recovered/Resolved]
  - Nasopharyngitis [Recovered/Resolved]
  - Axillary mass [Not Recovered/Not Resolved]
  - Feeling abnormal [Unknown]
  - Blood pressure decreased [Recovered/Resolved]
  - Breast pain [Recovered/Resolved]
  - Immunodeficiency [Recovered/Resolved]
  - Eating disorder [Recovered/Resolved]
  - Weight decreased [Not Recovered/Not Resolved]
  - Vitamin D decreased [Recovering/Resolving]
  - Hypertension [Recovered/Resolved]
  - Nausea [Recovered/Resolved]
